FAERS Safety Report 15424251 (Version 2)
Quarter: 2019Q1

REPORT INFORMATION
  Report Type: Spontaneous
  Country: US (occurrence: US)
  Receive Date: 20180925
  Receipt Date: 20190109
  Transmission Date: 20190417
  Serious: Yes (Other)
  Sender: FDA-Public Use
  Company Number: US-BAYER-2018-175080

PATIENT
  Sex: Female

DRUGS (8)
  1. MIDOL COMPLETE [Suspect]
     Active Substance: ACETAMINOPHEN\CAFFEINE\PYRILAMINE MALEATE
  2. BAYER ASPIRIN [Suspect]
     Active Substance: ASPIRIN
  3. AFRIN NO DRIP EXTRA MOISTURIZING [Suspect]
     Active Substance: OXYMETAZOLINE HYDROCHLORIDE
  4. ESSURE [Suspect]
     Active Substance: DEVICE
  5. ALEVE [Suspect]
     Active Substance: NAPROXEN SODIUM
  6. CLARITIN-D NOS [Suspect]
     Active Substance: LORATADINE\PSEUDOEPHEDRINE SULFATE
  7. CIPRO [Suspect]
     Active Substance: CIPROFLOXACIN HYDROCHLORIDE
  8. AVELOX [Suspect]
     Active Substance: MOXIFLOXACIN HYDROCHLORIDE

REACTIONS (3)
  - Immune system disorder [Unknown]
  - Adverse event [Unknown]
  - Drug hypersensitivity [Unknown]
